FAERS Safety Report 6471250-8 (Version None)
Quarter: 2009Q4

REPORT INFORMATION
  Report Type: 
  Country: None (occurrence: None)
  Receive Date: 20091203
  Receipt Date: 20080209
  Transmission Date: 20100525
  Serious: Yes (Other)
  Sender: FDA-Public Use
  Company Number: US-ELI_LILLY_AND_COMPANY-US200802002384

PATIENT
  Sex: Male
  Weight: 118.82 kg

DRUGS (17)
  1. BYETTA [Suspect]
     Indication: TYPE 2 DIABETES MELLITUS
     Dosage: 5 UG, 2/D
     Route: 058
     Dates: start: 20060101, end: 20060101
  2. BYETTA [Suspect]
     Dosage: 10 UG, 2/D
     Route: 058
     Dates: start: 20060101, end: 20060101
  3. BYETTA [Suspect]
     Dosage: 5 UG, DAILY (1/D)
     Route: 058
     Dates: start: 20060101
  4. BYETTA [Suspect]
     Dosage: 10 UG, EACH EVENING
     Route: 058
     Dates: start: 20060101
  5. GLIMEPIRIDE [Concomitant]
     Indication: TYPE 2 DIABETES MELLITUS
     Dosage: 10 MG, 2/D
     Route: 048
  6. GLIMEPIRIDE [Concomitant]
     Dosage: 5 MG, 2/D
     Route: 048
  7. CORDARONE [Concomitant]
     Indication: ATRIAL FIBRILLATION
     Dosage: 200 MG, DAILY (1/D)
     Route: 048
     Dates: start: 20050801
  8. FUROSEMIDE [Concomitant]
     Indication: POLYURIA
     Dosage: 80 MG, 2/D
     Route: 048
     Dates: start: 20060101, end: 20070101
  9. FUROSEMIDE [Concomitant]
     Dosage: 80 MG, DAILY (1/D)
     Route: 048
     Dates: start: 20070101
  10. PROSCAR [Concomitant]
     Indication: BENIGN PROSTATIC HYPERPLASIA
     Dosage: 5 MG, DAILY (1/D)
     Dates: start: 19900101
  11. LIPITOR [Concomitant]
     Indication: BLOOD CHOLESTEROL
     Dosage: 20 MG, QOD
     Route: 048
  12. LIPITOR [Concomitant]
     Dosage: 40 MG, QOD
     Route: 048
  13. NIACIN [Concomitant]
     Indication: PROPHYLAXIS
     Dosage: 500 MG, DAILY (1/D)
     Route: 048
  14. FISH OIL [Concomitant]
     Indication: PROPHYLAXIS
     Dosage: UNK, DAILY (1/D)
     Route: 048
  15. WARFARIN SODIUM [Concomitant]
     Indication: ATRIAL FIBRILLATION
     Dosage: 5 MG, 6/W
     Route: 048
  16. WARFARIN SODIUM [Concomitant]
     Dosage: 2 MG, WEEKLY (1/W)
     Route: 048
  17. ACTOS [Concomitant]
     Indication: TYPE 2 DIABETES MELLITUS
     Dosage: 30 MG, DAILY (1/D)
     Route: 048
     Dates: end: 20071101

REACTIONS (5)
  - BLOOD GLUCOSE INCREASED [None]
  - CEREBROVASCULAR ACCIDENT [None]
  - INTERNATIONAL NORMALISED RATIO FLUCTUATION [None]
  - OROPHARYNGEAL PAIN [None]
  - TINEA CRURIS [None]
